FAERS Safety Report 8012274-9 (Version None)
Quarter: 2011Q4

REPORT INFORMATION
  Report Type: 
  Country: None (occurrence: None)
  Receive Date: 20111228
  Receipt Date: 20111219
  Transmission Date: 20120403
  Serious: Yes (Hospitalization, Other)
  Sender: FDA-Public Use
  Company Number: US-ASTRAZENECA-2011SE54404

PATIENT
  Age: 79 Year
  Sex: Female
  Weight: 67.6 kg

DRUGS (21)
  1. DOCUSATE SODIUM [Concomitant]
     Dosage: 200 MG AT BEDTIME AS NEEDED
     Route: 048
  2. MEGESTROL ACETATE [Concomitant]
     Route: 048
  3. FOLIC ACID [Concomitant]
  4. ASPIRIN [Concomitant]
     Route: 048
  5. VITAMIN D [Concomitant]
     Dosage: 1000 UNIT CAP, TAKE 2 EVERY DAY
     Route: 048
  6. MUPIROCIN [Concomitant]
     Dosage: TWO TIME EVERY DAY FOR 10 DAYS A SMALL AMOUNT ON AFFECTED AREA
     Route: 061
  7. AMOXICILLIN [Concomitant]
     Dosage: 2000 MG PRIOR TO DENTAL PROCEDURE
  8. LIPITOR [Suspect]
     Dates: end: 20110301
  9. LIPITOR [Suspect]
     Dates: end: 20110301
  10. COQ [Concomitant]
  11. LIPITOR [Suspect]
     Dates: end: 20110301
  12. DOCUSATE SODIUM [Concomitant]
     Dosage: 250 MG AT BEDTIME AS NEEDED
     Route: 048
  13. ASPIRIN [Concomitant]
     Route: 048
  14. AMBIEN [Concomitant]
     Route: 048
  15. PREDNISONE TAB [Concomitant]
  16. VITAMIN B-12 [Concomitant]
     Dosage: 1000 MCG/ML, INJECT 0.1 ML (100MCG) EVERY MONTH
     Route: 030
  17. CRESTOR [Suspect]
     Indication: HYPERCHOLESTEROLAEMIA
     Route: 048
     Dates: start: 20110308, end: 20110427
  18. IRON ER [Concomitant]
     Dosage: 55MG (18 MG IRON) TAB EVERY DAY
  19. IPRATROPIUM BROMIDE AND ALBUTEROL SULFATE [Concomitant]
     Dosage: 18 MCG-103 MCG ACTUATION AEROSOL INHALER AS NEEDED
  20. DIOVAN [Concomitant]
     Route: 048
  21. IRON ER [Concomitant]
     Dosage: TWO TIMES EVERY DAY

REACTIONS (14)
  - MYALGIA [None]
  - BLOOD CREATINE PHOSPHOKINASE INCREASED [None]
  - ASTHENIA [None]
  - PYREXIA [None]
  - ARTHRALGIA [None]
  - COUGH [None]
  - CORONARY ARTERY DISEASE [None]
  - FALL [None]
  - MOBILITY DECREASED [None]
  - ANAEMIA [None]
  - MUSCULAR WEAKNESS [None]
  - FATIGUE [None]
  - HYPOTHYROIDISM [None]
  - RHABDOMYOLYSIS [None]
